FAERS Safety Report 4386031-9 (Version None)
Quarter: 2004Q2

REPORT INFORMATION
  Report Type: 
  Country: None (occurrence: None)
  Receive Date: 20040610
  Receipt Date: 20040503
  Transmission Date: 20050107
  Serious: No
  Sender: FDA-Public Use
  Company Number: A03200401415

PATIENT
  Age: 74 Year
  Sex: Female
  Weight: 74.8435 kg

DRUGS (3)
  1. ELOXATIN [Suspect]
     Indication: COLORECTAL CANCER
     Dosage: INTRAVENOUS NOS
     Route: 042
     Dates: start: 20040428, end: 20040428
  2. FLUOROURACIL [Concomitant]
  3. LEUCOVORIN [Concomitant]

REACTIONS (1)
  - NECK PAIN [None]
